FAERS Safety Report 18137403 (Version 1)
Quarter: 2020Q3

REPORT INFORMATION
  Report Type: Spontaneous
  Country: US (occurrence: US)
  Receive Date: 20200812
  Receipt Date: 20200812
  Transmission Date: 20201103
  Serious: Yes (Other)
  Sender: FDA-Public Use
  Company Number: US-LUPIN PHARMACEUTICALS INC.-2020-04438

PATIENT
  Age: 25 Year
  Sex: Female

DRUGS (14)
  1. INSULIN [Concomitant]
     Active Substance: INSULIN NOS
     Indication: VASOPLEGIA SYNDROME
     Dosage: 1 UNIT/KG
     Route: 042
  2. DEXTROSE. [Concomitant]
     Active Substance: DEXTROSE
     Indication: BLOOD GLUCOSE ABNORMAL
     Dosage: 10% INFUSION WITH INSULIN
     Route: 042
  3. GLUCAGON. [Concomitant]
     Active Substance: GLUCAGON
     Dosage: 5 MILLIGRAM PER HOUR
     Route: 042
  4. VASOPRESSIN. [Concomitant]
     Active Substance: VASOPRESSIN
     Indication: VASOPLEGIA SYNDROME
     Dosage: 0.03 UNITS PER MIN
     Route: 065
  5. GLUCAGON. [Concomitant]
     Active Substance: GLUCAGON
     Indication: VASOPLEGIA SYNDROME
     Dosage: IV BOLUS OF GLUCAGON AT 5MG, FOLLOWED BY IV INFUSION OF GLUCAGON AT 5 MG/H
     Route: 065
  6. NOREPINEPHRINE. [Concomitant]
     Active Substance: NOREPINEPHRINE
     Indication: VASOPLEGIA SYNDROME
     Dosage: 2 MICROGRAM/MIN
     Route: 042
  7. PHENYLEPHRINE [Concomitant]
     Active Substance: PHENYLEPHRINE HYDROCHLORIDE
     Dosage: 180 MICROGRAM/MIN (UP?TITRATED)
     Route: 042
  8. DEXTROSE. [Concomitant]
     Active Substance: DEXTROSE
     Dosage: GLUCOSE 50% INTRAVENOUS PUSH WITH INSULIN
     Route: 042
  9. CALCIUM [Suspect]
     Active Substance: CALCIUM
     Indication: VASOPLEGIA SYNDROME
     Dosage: 30 MILLILITER OVER 10 MIN FOR THREE TIMES AT AN INTERVAL OF 20 MIN
     Route: 042
  10. NOREPINEPHRINE. [Concomitant]
     Active Substance: NOREPINEPHRINE
     Dosage: 180 MICROGRAM/MIN
     Route: 042
  11. PHENYLEPHRINE [Concomitant]
     Active Substance: PHENYLEPHRINE HYDROCHLORIDE
     Indication: VASOPLEGIA SYNDROME
     Dosage: 20 MICROGRAM/MIN
     Route: 042
  12. POTASSIUM CHLORIDE. [Concomitant]
     Active Substance: POTASSIUM CHLORIDE
     Indication: BLOOD POTASSIUM ABNORMAL
     Dosage: UNK
     Route: 042
  13. INSULIN [Concomitant]
     Active Substance: INSULIN NOS
     Dosage: 0.5 UNITS/KG/H TITRATED UP TO 5 UNITS/KG/H
     Route: 042
  14. CALCIUM [Suspect]
     Active Substance: CALCIUM
     Indication: HYPOTENSION
     Dosage: 1 MILLILITRE PER KILOGRAM/HR
     Route: 042

REACTIONS (1)
  - Drug ineffective [Unknown]
